FAERS Safety Report 10704371 (Version 3)
Quarter: 2015Q1

REPORT INFORMATION
  Report Type: Spontaneous
  Country: US (occurrence: US)
  Receive Date: 20150112
  Receipt Date: 20150304
  Transmission Date: 20150721
  Serious: No
  Sender: FDA-Public Use
  Company Number: US-SHIRE-US201409373

PATIENT
  Age: 63 Year
  Sex: Male
  Weight: 97.96 kg

DRUGS (2)
  1. LIALDA [Suspect]
     Active Substance: MESALAMINE
     Indication: COLITIS
     Dosage: 1.2 G, OTHER (EVERY 2-3 HOURS OR 3-4 HOURS, WITH FOOD TO EQUAL 4 TABLETS DAILY)
     Route: 048
     Dates: start: 20141216, end: 20141225
  2. SIMVASTATIN. [Concomitant]
     Active Substance: SIMVASTATIN
     Indication: BLOOD CHOLESTEROL INCREASED
     Dosage: 20 MG, 1X/DAY:QD
     Route: 048
     Dates: start: 2009

REACTIONS (3)
  - Product quality issue [Not Recovered/Not Resolved]
  - Inappropriate schedule of drug administration [Recovered/Resolved]
  - Protein urine present [Unknown]

NARRATIVE: CASE EVENT DATE: 20141216
